FAERS Safety Report 9512931 (Version 1)
Quarter: 2013Q3

REPORT INFORMATION
  Report Type: Report from Study
  Country: US (occurrence: US)
  Receive Date: 20130910
  Receipt Date: 20130910
  Transmission Date: 20140515
  Serious: Yes (Hospitalization)
  Sender: FDA-Public Use
  Company Number: US-ELI_LILLY_AND_COMPANY-US201309001485

PATIENT
  Age: 60 Year
  Sex: Male

DRUGS (3)
  1. GEMCITABINE HYDROCHLORIDE [Suspect]
     Indication: HEPATOCELLULAR CARCINOMA
     Dosage: 10 MG/KG, UNK
     Dates: start: 20130314, end: 20130729
  2. BEVACIZUMAB [Suspect]
     Indication: HEPATOCELLULAR CARCINOMA
     Dosage: 10 MG/KG, DAY 1 AND 15 OF EVERY 28 DAYS
     Route: 042
     Dates: start: 20130314, end: 20130729
  3. TARCEVA [Suspect]
     Indication: HEPATOCELLULAR CARCINOMA
     Dosage: 150 MG, QD
     Route: 048
     Dates: start: 20130314, end: 20130729

REACTIONS (1)
  - Hepatic encephalopathy [Unknown]
